FAERS Safety Report 10045862 (Version 1)
Quarter: 2014Q1

REPORT INFORMATION
  Report Type: Spontaneous
  Country: AU (occurrence: AU)
  Receive Date: 20140329
  Receipt Date: 20140329
  Transmission Date: 20141002
  Serious: Yes (Hospitalization)
  Sender: FDA-Public Use
  Company Number: AU-ROCHE-1373597

PATIENT
  Sex: Female

DRUGS (1)
  1. LUCENTIS [Suspect]
     Indication: AGE-RELATED MACULAR DEGENERATION
     Dosage: RIGHT EYE
     Route: 050

REACTIONS (2)
  - Transient ischaemic attack [Recovering/Resolving]
  - Circulatory collapse [Recovering/Resolving]
